FAERS Safety Report 9487537 (Version 2)
Quarter: 2013Q3

REPORT INFORMATION
  Report Type: Spontaneous
  Country: US (occurrence: US)
  Receive Date: 20130725
  Receipt Date: 20130725
  Transmission Date: 20140515
  Serious: No
  Sender: FDA-Public Use
  Company Number: US-GLAXOSMITHKLINE-A0804315A

PATIENT
  Age: 51 Year
  Sex: Male

DRUGS (1)
  1. AVANDIA [Suspect]
     Indication: DIABETES MELLITUS
     Dosage: 4MG PER DAY
     Route: 048
     Dates: start: 2004, end: 2008

REACTIONS (6)
  - Heart rate irregular [Not Recovered/Not Resolved]
  - Cardiac flutter [Unknown]
  - Vision blurred [Unknown]
  - Nausea [Unknown]
  - Weight increased [Unknown]
  - Dyspnoea [Unknown]
